FAERS Safety Report 19082846 (Version 2)
Quarter: 2021Q2

REPORT INFORMATION
  Report Type: Report from Study
  Country: FR (occurrence: FR)
  Receive Date: 20210401
  Receipt Date: 20210419
  Transmission Date: 20210717
  Serious: Yes (Hospitalization)
  Sender: FDA-Public Use
  Company Number: FR-ROCHE-2797846

PATIENT
  Age: 79 Year
  Sex: Male
  Weight: 71 kg

DRUGS (8)
  1. CORTANCYL [Suspect]
     Active Substance: PREDNISONE
     Indication: GIANT CELL ARTERITIS
     Route: 048
     Dates: start: 20210207, end: 20210222
  2. CORTANCYL [Suspect]
     Active Substance: PREDNISONE
     Indication: OPTIC ISCHAEMIC NEUROPATHY
     Route: 048
     Dates: start: 20210223, end: 20210304
  3. ASPIRIN. [Concomitant]
     Active Substance: ASPIRIN
  4. TOCILIZUMAB. [Suspect]
     Active Substance: TOCILIZUMAB
     Indication: GIANT CELL ARTERITIS
     Dosage: 12/FEB/2021, 19/FEB/2021, 26/FEB/2021
     Route: 058
     Dates: start: 20210204
  5. SOLU?MEDROL [Suspect]
     Active Substance: METHYLPREDNISOLONE SODIUM SUCCINATE
     Indication: GIANT CELL ARTERITIS
     Route: 042
     Dates: start: 20210204, end: 20210206
  6. SOLU?MEDROL [Suspect]
     Active Substance: METHYLPREDNISOLONE SODIUM SUCCINATE
     Indication: OPTIC ISCHAEMIC NEUROPATHY
  7. CORTANCYL [Suspect]
     Active Substance: PREDNISONE
     Route: 048
     Dates: start: 20210305
  8. TOCILIZUMAB. [Suspect]
     Active Substance: TOCILIZUMAB
     Indication: OPTIC ISCHAEMIC NEUROPATHY

REACTIONS (1)
  - Myocardial infarction [Not Recovered/Not Resolved]

NARRATIVE: CASE EVENT DATE: 202103
